FAERS Safety Report 7144870-5 (Version None)
Quarter: 2010Q4

REPORT INFORMATION
  Report Type: 
  Country: None (occurrence: None)
  Receive Date: 20101208
  Receipt Date: 20101124
  Transmission Date: 20110411
  Serious: Yes (Hospitalization)
  Sender: FDA-Public Use
  Company Number: GB-CELGENEUS-167-C5013-10112786

PATIENT
  Sex: Male
  Weight: 78 kg

DRUGS (6)
  1. CC-5013\PLACEBO [Suspect]
     Indication: PROSTATE CANCER
     Route: 048
     Dates: start: 20100826
  2. CC-5013\PLACEBO [Suspect]
     Route: 048
     Dates: start: 20101118
  3. DOCETAXEL [Suspect]
     Indication: PROSTATE CANCER
     Route: 065
     Dates: start: 20100826
  4. DOCETAXEL [Suspect]
     Route: 065
     Dates: start: 20101118
  5. PREDNISONE [Suspect]
     Indication: PROSTATE CANCER
     Route: 065
     Dates: start: 20100825
  6. PREDNISONE [Suspect]
     Route: 065
     Dates: start: 20101117

REACTIONS (1)
  - INTRACARDIAC THROMBUS [None]
